FAERS Safety Report 9921422 (Version 1)
Quarter: 2014Q1

REPORT INFORMATION
  Report Type: Spontaneous
  Country: US (occurrence: None)
  Receive Date: 20140221
  Receipt Date: 20140221
  Transmission Date: 20141002
  Serious: Yes (Other)
  Sender: FDA-Public Use
  Company Number: None

PATIENT
  Sex: 0

DRUGS (2)
  1. EQUATE EXTRA STRENGTH ANTACID TABLETS [Suspect]
  2. ULTRA-STRENGTH ANTACID TABLETS [Suspect]

REACTIONS (3)
  - Abdominal pain [None]
  - Diarrhoea [None]
  - Diarrhoea haemorrhagic [None]
